FAERS Safety Report 6023754-X (Version None)
Quarter: 2008Q4

REPORT INFORMATION
  Report Type: 
  Country: None (occurrence: None)
  Receive Date: 20081230
  Receipt Date: 20081219
  Transmission Date: 20090506
  Serious: Yes (Other)
  Sender: FDA-Public Use
  Company Number: US-AMGEN-QUU322036

PATIENT
  Sex: Female

DRUGS (4)
  1. ENBREL [Suspect]
     Indication: RHEUMATOID ARTHRITIS
     Route: 058
     Dates: start: 20001030
  2. METHOTREXATE [Suspect]
     Indication: RHEUMATOID ARTHRITIS
     Route: 048
     Dates: start: 20000607
  3. PLAQUENIL [Concomitant]
     Dates: start: 19991011, end: 20040106
  4. DIFLUNISAL [Concomitant]

REACTIONS (2)
  - ABORTION SPONTANEOUS [None]
  - MIGRAINE [None]
